FAERS Safety Report 18323076 (Version 1)
Quarter: 2020Q3

REPORT INFORMATION
  Report Type: Spontaneous
  Country: US (occurrence: US)
  Receive Date: 20200929
  Receipt Date: 20200929
  Transmission Date: 20201103
  Serious: No
  Sender: FDA-Public Use
  Company Number: US-BION-008460

PATIENT
  Sex: Male
  Weight: 87.09 kg

DRUGS (3)
  1. MESALAZINE [Concomitant]
     Active Substance: MESALAMINE
     Dosage: TO BE USED FOR 30 DAYS
  2. IMODIUM A?D [Suspect]
     Active Substance: LOPERAMIDE HYDROCHLORIDE
     Indication: DIARRHOEA
     Dosage: 2 SOFTGELS PER USE?LAST DATE OF ADMINISTRATION: 13?DEC?2019
     Route: 048
     Dates: start: 20191211
  3. PREDNISONE. [Concomitant]
     Active Substance: PREDNISONE
     Dosage: TO BE USED FOR 30 DAYS

REACTIONS (1)
  - Self-medication [Not Recovered/Not Resolved]
